FAERS Safety Report 8436255-6 (Version None)
Quarter: 2012Q2

REPORT INFORMATION
  Report Type: 
  Country: None (occurrence: None)
  Receive Date: 20120614
  Receipt Date: 20120605
  Transmission Date: 20120825
  Serious: Yes (Other)
  Sender: FDA-Public Use
  Company Number: BR-JNJFOC-20120603637

PATIENT
  Sex: Female

DRUGS (7)
  1. HYDROCHLOROTHIAZIDE [Concomitant]
     Indication: HYPERTENSION
     Route: 048
     Dates: start: 20070101
  2. METOPROLOL SUCCINATE [Concomitant]
     Indication: CARDIAC DISORDER
     Route: 065
     Dates: start: 20120401
  3. REMICADE [Suspect]
     Indication: RHEUMATOID ARTHRITIS
     Route: 042
     Dates: start: 20120522
  4. REMICADE [Suspect]
     Route: 042
     Dates: start: 20090101
  5. AMIODARONE HCL [Concomitant]
     Indication: CARDIAC DISORDER
     Route: 065
     Dates: start: 20120401
  6. LOSARTAN POTASSIUM [Concomitant]
     Indication: CARDIAC DISORDER
     Route: 065
     Dates: start: 20120401
  7. ACETYLSALICYLIC ACID SRT [Concomitant]
     Indication: CARDIAC DISORDER
     Route: 048
     Dates: start: 20120401

REACTIONS (7)
  - FIBROMYALGIA [None]
  - SINUSITIS [None]
  - HEADACHE [None]
  - CONTRAINDICATION TO VACCINATION [None]
  - DYSPNOEA [None]
  - EPISTAXIS [None]
  - NASOPHARYNGITIS [None]
